FAERS Safety Report 23868222 (Version 4)
Quarter: 2025Q1

REPORT INFORMATION
  Report Type: Report from Study
  Country: CL (occurrence: CL)
  Receive Date: 20240517
  Receipt Date: 20250103
  Transmission Date: 20250408
  Serious: Yes (Other)
  Sender: JOHNSON AND JOHNSON
  Company Number: CL-JNJFOC-20231184924

PATIENT
  Age: 63 Year
  Sex: Female

DRUGS (2)
  1. SIMPONI [Suspect]
     Active Substance: GOLIMUMAB
     Indication: Rheumatoid arthritis
     Dates: start: 20231025, end: 20241102
  2. PREDNISONE [Suspect]
     Active Substance: PREDNISONE
     Indication: Pharyngitis
     Route: 065

REACTIONS (7)
  - Cataract [Unknown]
  - Intervertebral disc protrusion [Unknown]
  - Bronchitis [Recovered/Resolved]
  - COVID-19 [Unknown]
  - Skin discolouration [Unknown]
  - Eye allergy [Unknown]
  - Blood glucose decreased [Unknown]

NARRATIVE: CASE EVENT DATE: 20231101
